FAERS Safety Report 12414687 (Version 1)
Quarter: 2016Q2

REPORT INFORMATION
  Report Type: Spontaneous
  Country: AU (occurrence: AU)
  Receive Date: 20160528
  Receipt Date: 20160528
  Transmission Date: 20160815
  Serious: Yes (Hospitalization, Other)
  Sender: FDA-Public Use
  Company Number: AU-APOTEX-2016AP008518

PATIENT
  Age: 3 Day
  Sex: Female
  Weight: 4.33 kg

DRUGS (8)
  1. TEMAZEPAM. [Suspect]
     Active Substance: TEMAZEPAM
     Indication: DEPRESSION
     Dosage: UNK UNK, UNKNOWN
     Route: 064
  2. VENLAFAXINE [Suspect]
     Active Substance: VENLAFAXINE HYDROCHLORIDE
     Indication: ANXIETY
     Dosage: UNK
     Route: 063
  3. APO-QUETIAPINE [Suspect]
     Active Substance: QUETIAPINE
     Indication: DEPRESSION
     Dosage: UNK, UNKNOWN
     Route: 064
  4. APO-QUETIAPINE [Suspect]
     Active Substance: QUETIAPINE
     Indication: ANXIETY
  5. OLANZAPINE. [Suspect]
     Active Substance: OLANZAPINE
     Indication: DEPRESSION
     Dosage: UNK, UNKNOWN
     Route: 064
  6. OLANZAPINE. [Suspect]
     Active Substance: OLANZAPINE
     Indication: ANXIETY
  7. VENLAFAXINE [Suspect]
     Active Substance: VENLAFAXINE HYDROCHLORIDE
     Indication: DEPRESSION
     Dosage: 300 MG, UNKNOWN
     Route: 064
  8. TEMAZEPAM. [Suspect]
     Active Substance: TEMAZEPAM
     Indication: ANXIETY

REACTIONS (7)
  - Exposure during breast feeding [Recovering/Resolving]
  - Neonatal behavioural syndrome [Recovered/Resolved]
  - Convulsion neonatal [Unknown]
  - Failure to thrive [Recovering/Resolving]
  - Poor weight gain neonatal [Recovering/Resolving]
  - Foetal exposure during pregnancy [Recovering/Resolving]
  - Drug withdrawal syndrome neonatal [Recovered/Resolved]
